FAERS Safety Report 6151085-6 (Version None)
Quarter: 2009Q2

REPORT INFORMATION
  Report Type: 
  Country: None (occurrence: None)
  Receive Date: 20090410
  Receipt Date: 20090401
  Transmission Date: 20091009
  Serious: Yes (Other)
  Sender: FDA-Public Use
  Company Number: US-JNJFOC-20061006073

PATIENT
  Sex: Male
  Weight: 72.58 kg

DRUGS (4)
  1. RISPERDAL [Suspect]
     Indication: DEPRESSION
  2. RISPERDAL [Suspect]
     Indication: BIPOLAR I DISORDER
  3. RISPERDAL [Suspect]
     Indication: SCHIZOAFFECTIVE DISORDER
  4. PAXIL [Concomitant]

REACTIONS (6)
  - BLOOD TRIGLYCERIDES INCREASED [None]
  - DIABETES MELLITUS [None]
  - DIABETIC RETINOPATHY [None]
  - ERECTILE DYSFUNCTION [None]
  - NEUROPATHY PERIPHERAL [None]
  - WEIGHT INCREASED [None]
